FAERS Safety Report 4860525-1 (Version None)
Quarter: 2005Q4

REPORT INFORMATION
  Report Type: 
  Country: None (occurrence: None)
  Receive Date: 20051216
  Receipt Date: 20051202
  Transmission Date: 20060501
  Serious: Yes (Other)
  Sender: FDA-Public Use
  Company Number: 219403

PATIENT
  Age: 52 Year
  Sex: Male
  Weight: 161 kg

DRUGS (14)
  1. HERCEPTIN [Suspect]
     Indication: BREAST CANCER
     Dosage: 200 MG, 1/WEEK, INTRAVENOUS
     Route: 042
     Dates: start: 20051027
  2. TAXOL [Concomitant]
  3. ATENOL (ATENOLOL) [Concomitant]
  4. BACLOFEN [Concomitant]
  5. ALLOPURINOL [Concomitant]
  6. TRICOR [Concomitant]
  7. PREVACID [Concomitant]
  8. DIOVAN [Concomitant]
  9. PROCRIT [Concomitant]
  10. ZANAFLEX [Concomitant]
  11. COPAXONE [Concomitant]
  12. GLUCOTROL [Concomitant]
  13. DETROL LA (TOLTERODINE TARTRATE) [Concomitant]
  14. PERCOCET [Concomitant]

REACTIONS (1)
  - RENAL FAILURE [None]
